FAERS Safety Report 7618289-4 (Version None)
Quarter: 2011Q3

REPORT INFORMATION
  Report Type: 
  Country: None (occurrence: None)
  Receive Date: 20110718
  Receipt Date: 20110622
  Transmission Date: 20111222
  Serious: Yes (Other)
  Sender: FDA-Public Use
  Company Number: CA-ROCHE-765609

PATIENT
  Sex: Male

DRUGS (6)
  1. NORVASC [Concomitant]
  2. LORAZEPAM [Concomitant]
  3. FLOMAX [Concomitant]
  4. PROCHLORPERAZINE TAB [Concomitant]
  5. METHYLPREDNISOLONE [Concomitant]
     Indication: PREMEDICATION
     Dosage: TAKEN ONCE
     Route: 042
     Dates: start: 20110303, end: 20110303
  6. BEVACIZUMAB [Suspect]
     Indication: GLIOBLASTOMA
     Route: 042
     Dates: start: 20100805, end: 20110303

REACTIONS (4)
  - DISEASE PROGRESSION [None]
  - OROPHARYNGEAL PAIN [None]
  - NASAL CONGESTION [None]
  - RHINORRHOEA [None]
